FAERS Safety Report 19241855 (Version 3)
Quarter: 2022Q1

REPORT INFORMATION
  Report Type: Report from Study
  Country: IE (occurrence: IE)
  Receive Date: 20210511
  Receipt Date: 20220330
  Transmission Date: 20220423
  Serious: Yes (Other)
  Sender: FDA-Public Use
  Company Number: IE-TAKEDA-IE202018439

PATIENT
  Age: 63 Year
  Sex: Male

DRUGS (8)
  1. HUMAN IMMUNOGLOBULIN G\HYALURONIDASE RECOMBINANT HUMAN [Suspect]
     Active Substance: HUMAN IMMUNOGLOBULIN G\HYALURONIDASE RECOMBINANT HUMAN
     Indication: Rheumatoid arthritis
     Dosage: 30 GRAM, Q3WEEKS
     Route: 058
     Dates: start: 20200430
  2. HUMAN IMMUNOGLOBULIN G\HYALURONIDASE RECOMBINANT HUMAN [Suspect]
     Active Substance: HUMAN IMMUNOGLOBULIN G\HYALURONIDASE RECOMBINANT HUMAN
     Dosage: 30 GRAM, Q3WEEKS
     Route: 058
     Dates: start: 20200506
  3. RITUXIMAB [Concomitant]
     Active Substance: RITUXIMAB
     Indication: Product used for unknown indication
     Dosage: 1 N/A
     Route: 050
  4. VITAMIN B12 [Concomitant]
     Active Substance: CYANOCOBALAMIN
     Indication: Product used for unknown indication
     Dosage: 1 N/A
     Route: 050
  5. PROLIA [Concomitant]
     Active Substance: DENOSUMAB
     Indication: Product used for unknown indication
     Dosage: 1 N/A
     Route: 050
  6. TRAMADOL [Concomitant]
     Active Substance: TRAMADOL
     Indication: Product used for unknown indication
     Dosage: 1 N/A, TID
     Route: 050
  7. TRAMADOL [Concomitant]
     Active Substance: TRAMADOL
     Dosage: 1 N/A, BID
     Route: 050
  8. SIMVASTATIN [Concomitant]
     Active Substance: SIMVASTATIN
     Indication: Product used for unknown indication
     Dosage: 20 MILLIGRAM, 1X/DAY:QD
     Route: 050

REACTIONS (13)
  - Lower respiratory tract infection [Recovering/Resolving]
  - Diarrhoea [Recovering/Resolving]
  - Infection [Not Recovered/Not Resolved]
  - Vomiting [Recovering/Resolving]
  - Pyrexia [Recovering/Resolving]
  - Cough [Unknown]
  - Back pain [Not Recovered/Not Resolved]
  - Malaise [Not Recovered/Not Resolved]
  - Product storage error [Recovered/Resolved]
  - Device infusion issue [Recovered/Resolved]
  - Device difficult to use [Recovered/Resolved]
  - Product use in unapproved indication [Unknown]
  - Product dose omission issue [Recovering/Resolving]

NARRATIVE: CASE EVENT DATE: 20200529
